FAERS Safety Report 4681728-5 (Version None)
Quarter: 2005Q2

REPORT INFORMATION
  Report Type: 
  Country: None (occurrence: None)
  Receive Date: 20050603
  Receipt Date: 20050303
  Transmission Date: 20051028
  Serious: Yes (Hospitalization)
  Sender: FDA-Public Use
  Company Number: US-MERCK-0503USA00853

PATIENT
  Age: 77 Year
  Sex: Female
  Weight: 59 kg

DRUGS (9)
  1. VIOXX [Suspect]
     Indication: ARTHRITIS
     Route: 048
     Dates: start: 20011009, end: 20030101
  2. LEXXEL [Concomitant]
     Indication: HYPERTENSION
     Route: 065
     Dates: start: 19971201, end: 20031201
  3. TOPROL-XL [Concomitant]
     Indication: HYPERTENSION
     Route: 048
     Dates: start: 19971201
  4. NORVASC [Concomitant]
     Route: 048
  5. DYAZIDE [Concomitant]
     Indication: POLYURIA
     Route: 065
     Dates: start: 19950101, end: 20031203
  6. DYAZIDE [Concomitant]
     Indication: HYPERTENSION
     Route: 065
     Dates: start: 19950101, end: 20031203
  7. ASPIRIN [Concomitant]
     Indication: TRANSIENT ISCHAEMIC ATTACK
     Route: 048
     Dates: start: 19950101, end: 20030101
  8. ASPIRIN [Concomitant]
     Indication: CEREBROVASCULAR ACCIDENT PROPHYLAXIS
     Route: 048
     Dates: start: 19950101, end: 20030101
  9. PREMARIN [Concomitant]
     Indication: HORMONE REPLACEMENT THERAPY
     Route: 065
     Dates: start: 19950101, end: 20031203

REACTIONS (9)
  - ADVERSE EVENT [None]
  - CAROTID ARTERY STENOSIS [None]
  - CEREBROVASCULAR ACCIDENT [None]
  - DEPRESSION [None]
  - DYSPEPSIA [None]
  - EMOTIONAL DISTRESS [None]
  - HYPERTENSION [None]
  - OSTEOARTHRITIS [None]
  - ROTATOR CUFF SYNDROME [None]
